FAERS Safety Report 11047571 (Version 1)
Quarter: 2015Q2

REPORT INFORMATION
  Report Type: Spontaneous
  Country: US (occurrence: None)
  Receive Date: 20150417
  Receipt Date: 20150417
  Transmission Date: 20150821
  Serious: Yes (Hospitalization, Other)
  Sender: FDA-Public Use
  Company Number: None

PATIENT
  Age: 29 Year
  Sex: Female
  Weight: 68.04 kg

DRUGS (4)
  1. DIUREX [Suspect]
     Active Substance: PAMABROM
     Indication: MUSCLE SPASMS
     Dosage: 1, TWICE DAILY, TAKEN BY MOUTH
     Route: 048
  2. DIUREX [Suspect]
     Active Substance: PAMABROM
     Indication: ABDOMINAL DISTENSION
     Dosage: 1, TWICE DAILY, TAKEN BY MOUTH
     Route: 048
  3. WEST WHEAT GRASS [Concomitant]
     Active Substance: PASCOPYRUM SMITHII POLLEN
  4. COCONUT OIL [Concomitant]
     Active Substance: COCONUT OIL

REACTIONS (3)
  - Hypersensitivity [None]
  - Scar [None]
  - Product formulation issue [None]

NARRATIVE: CASE EVENT DATE: 20140401
